FAERS Safety Report 19451396 (Version 1)
Quarter: 2021Q2

REPORT INFORMATION
  Report Type: Spontaneous
  Country: US (occurrence: US)
  Receive Date: 20210623
  Receipt Date: 20210623
  Transmission Date: 20210717
  Serious: No
  Sender: FDA-Public Use
  Company Number: ALC2020US008103

PATIENT
  Sex: Female

DRUGS (1)
  1. PATADAY [Suspect]
     Active Substance: OLOPATADINE HYDROCHLORIDE
     Indication: PRODUCT USED FOR UNKNOWN INDICATION
     Dosage: TWICE A DAY
     Route: 065
     Dates: end: 20201011

REACTIONS (4)
  - Ageusia [Recovering/Resolving]
  - Nasal congestion [Recovering/Resolving]
  - Decreased appetite [Recovering/Resolving]
  - Anosmia [Recovering/Resolving]
